FAERS Safety Report 8871316 (Version 1)
Quarter: 2012Q4

REPORT INFORMATION
  Report Type: 
  Country: AU (occurrence: AU)
  Receive Date: 20121023
  Receipt Date: 20121023
  Transmission Date: 20130627
  Serious: Yes (Death)
  Sender: FDA-Public Use
  Company Number: AU-ROCHE-1146020

PATIENT

DRUGS (12)
  1. RITUXIMAB [Suspect]
     Indication: MANTLE CELL LYMPHOMA
     Route: 065
  2. CYCLOPHOSPHAMIDE [Suspect]
     Indication: MANTLE CELL LYMPHOMA
     Route: 065
  3. VINCRISTINE [Suspect]
     Indication: MANTLE CELL LYMPHOMA
     Route: 065
  4. DOXORUBICIN [Suspect]
     Indication: MANTLE CELL LYMPHOMA
     Route: 065
  5. DEXAMETHASONE [Suspect]
     Indication: MANTLE CELL LYMPHOMA
     Route: 065
  6. CYTARABINE [Suspect]
     Indication: MANTLE CELL LYMPHOMA
     Route: 065
  7. MESNA [Suspect]
     Indication: MANTLE CELL LYMPHOMA
     Route: 065
  8. METHOTREXATE [Suspect]
     Indication: MANTLE CELL LYMPHOMA
     Route: 065
  9. LEUCOVORIN [Suspect]
     Indication: MANTLE CELL LYMPHOMA
     Route: 065
  10. SODIUM BICARBONATE [Suspect]
     Indication: MANTLE CELL LYMPHOMA
     Route: 065
  11. BUSULFAN [Suspect]
     Indication: MANTLE CELL LYMPHOMA
     Route: 065
  12. MELPHALAN [Suspect]
     Indication: MANTLE CELL LYMPHOMA
     Route: 065

REACTIONS (1)
  - Death [Fatal]
